FAERS Safety Report 17984109 (Version 3)
Quarter: 2020Q3

REPORT INFORMATION
  Report Type: Spontaneous
  Country: AT (occurrence: AT)
  Receive Date: 20200706
  Receipt Date: 20200716
  Transmission Date: 20201103
  Serious: Yes (Hospitalization, Other)
  Sender: FDA-Public Use
  Company Number: AT-PFIZER INC-2020255361

PATIENT
  Age: 27 Year
  Sex: Female

DRUGS (3)
  1. RISPERIDONE. [Interacting]
     Active Substance: RISPERIDONE
     Dosage: 4 MG, DAILY
  2. SERTRALINE HCL [Suspect]
     Active Substance: SERTRALINE HYDROCHLORIDE
     Dosage: 100 MG, DAILY
  3. PAROXETINE. [Interacting]
     Active Substance: PAROXETINE
     Dosage: 60 MG, DAILY

REACTIONS (9)
  - Flat affect [Unknown]
  - Treatment noncompliance [Unknown]
  - Hyperprolactinaemia [Unknown]
  - Hypomania [Unknown]
  - Therapeutic product effect incomplete [Unknown]
  - Decreased activity [Unknown]
  - Drug level increased [Unknown]
  - Drug interaction [Unknown]
  - Amenorrhoea [Unknown]
